FAERS Safety Report 7042709-X (Version None)
Quarter: 2010Q4

REPORT INFORMATION
  Report Type: 
  Country: None (occurrence: None)
  Receive Date: 20101013
  Receipt Date: 20100816
  Transmission Date: 20110411
  Serious: No
  Sender: FDA-Public Use
  Company Number: US-ASTRAZENECA-2010SE38362

PATIENT
  Age: 806 Month
  Sex: Female
  Weight: 54.4 kg

DRUGS (2)
  1. SYMBICORT [Suspect]
     Indication: BRONCHOSPASM
     Dosage: 160-4.5MCG
     Route: 055
  2. INHALER [Concomitant]

REACTIONS (2)
  - BREATH ODOUR [None]
  - DYSGEUSIA [None]
